FAERS Safety Report 8490032-9 (Version None)
Quarter: 2012Q3

REPORT INFORMATION
  Report Type: 
  Country: None (occurrence: None)
  Receive Date: 20120705
  Receipt Date: 20120626
  Transmission Date: 20120928
  Serious: Yes (Hospitalization, Other)
  Sender: FDA-Public Use
  Company Number: US-ELI_LILLY_AND_COMPANY-US201206008389

PATIENT
  Sex: Female
  Weight: 103.86 kg

DRUGS (5)
  1. GLIMEPIRIDE [Concomitant]
     Indication: TYPE 2 DIABETES MELLITUS
     Dosage: 4 MG, BID
     Route: 048
  2. JANUVIA [Concomitant]
     Indication: TYPE 2 DIABETES MELLITUS
     Dosage: 100 MG, QD
     Route: 048
     Dates: end: 20120601
  3. BYDUREON [Suspect]
     Indication: TYPE 2 DIABETES MELLITUS
     Dosage: 2 MG, WEEKLY (1/W)
     Route: 058
     Dates: start: 20120501
  4. HYDROCHLOROTHIAZIDE [Concomitant]
     Dosage: 1 DF, QD
     Route: 048
     Dates: end: 20120501
  5. VERAPAMIL [Concomitant]
     Dosage: 120 MG, QD
     Route: 048
     Dates: end: 20120501

REACTIONS (12)
  - BACK PAIN [None]
  - DECREASED APPETITE [None]
  - DEHYDRATION [None]
  - VOMITING [None]
  - BLOOD GLUCOSE DECREASED [None]
  - HYPERHIDROSIS [None]
  - GASTRITIS [None]
  - NAUSEA [None]
  - TREMOR [None]
  - CHEST DISCOMFORT [None]
  - SYNCOPE [None]
  - DYSPEPSIA [None]
